FAERS Safety Report 14081095 (Version 2)
Quarter: 2017Q4

REPORT INFORMATION
  Report Type: Spontaneous
  Country: US (occurrence: US)
  Receive Date: 20171012
  Receipt Date: 20171012
  Transmission Date: 20180321
  Serious: No
  Sender: FDA-Public Use
  Company Number: US-BAYER-2017-179628

PATIENT
  Age: 52 Year
  Sex: Female

DRUGS (1)
  1. CLIMARA PRO [Suspect]
     Active Substance: ESTRADIOL\LEVONORGESTREL
     Dosage: UNK
     Route: 062

REACTIONS (5)
  - Product physical issue [None]
  - Pain in extremity [None]
  - Device breakage [None]
  - Device material issue [None]
  - Device defective [None]

NARRATIVE: CASE EVENT DATE: 20171008
